FAERS Safety Report 7155158-0 (Version None)
Quarter: 2010Q4

REPORT INFORMATION
  Report Type: 
  Country: None (occurrence: None)
  Receive Date: 20101214
  Receipt Date: 20101019
  Transmission Date: 20110411
  Serious: No
  Sender: FDA-Public Use
  Company Number: US-AMGEN-KDL296290

PATIENT

DRUGS (3)
  1. ENBREL [Suspect]
     Indication: RHEUMATOID ARTHRITIS
     Dosage: 50 MG, QWK
     Route: 058
     Dates: start: 20080630, end: 20101004
  2. ENBREL [Suspect]
     Dates: start: 20080701, end: 20101004
  3. HYDROXYCHLOROQUINE SULFATE [Concomitant]
     Dosage: 200 MG, QD
     Route: 048

REACTIONS (4)
  - CLUSTER HEADACHE [None]
  - COUGH [None]
  - ERYTHEMA [None]
  - HYPERSENSITIVITY [None]
